FAERS Safety Report 22912192 (Version 2)
Quarter: 2023Q4

REPORT INFORMATION
  Report Type: Report from Study
  Country: GB (occurrence: GB)
  Receive Date: 20230906
  Receipt Date: 20231227
  Transmission Date: 20240110
  Serious: Yes (Hospitalization, Other)
  Sender: FDA-Public Use
  Company Number: GB-UCBSA-2023043359

PATIENT
  Sex: Female

DRUGS (1)
  1. CERTOLIZUMAB PEGOL [Suspect]
     Active Substance: CERTOLIZUMAB PEGOL
     Indication: Rheumatoid arthritis
     Dosage: 200 MILLIGRAM, EV 2 WEEKS(QOW)
     Route: 058
     Dates: start: 2023, end: 2023

REACTIONS (10)
  - Joint dislocation [Unknown]
  - Pneumonia [Unknown]
  - Dyspnoea [Unknown]
  - Oesophageal food impaction [Unknown]
  - Toothache [Unknown]
  - Mood swings [Unknown]
  - Decreased appetite [Unknown]
  - Gait disturbance [Unknown]
  - Feeling abnormal [Unknown]
  - Therapy cessation [Unknown]

NARRATIVE: CASE EVENT DATE: 20230101
